FAERS Safety Report 9507658 (Version 1)
Quarter: 2013Q1

REPORT INFORMATION
  Report Type: Spontaneous
  Country: US (occurrence: None)
  Receive Date: 20130305
  Receipt Date: 20130305
  Transmission Date: 20140127
  Serious: Yes (Hospitalization, Other)
  Sender: FDA-Public Use
  Company Number: 163-21880-12052872

PATIENT
  Age: 80 Year
  Sex: Male

DRUGS (1)
  1. REVLIMID [Suspect]
     Indication: PLASMA CELL MYELOMA
     Dosage: 10 MG, DAILY FOR 2121D ON FOLLOWED
     Dates: start: 20120504

REACTIONS (5)
  - Full blood count decreased [None]
  - Platelet count decreased [None]
  - Oedema peripheral [None]
  - Dyspnoea [None]
  - Vision blurred [None]
